FAERS Safety Report 18228715 (Version 1)
Quarter: 2020Q3

REPORT INFORMATION
  Report Type: Report from Study
  Country: IN (occurrence: IN)
  Receive Date: 20200903
  Receipt Date: 20200903
  Transmission Date: 20201103
  Serious: Yes (Hospitalization, Other)
  Sender: FDA-Public Use
  Company Number: NVSC2020IN239120

PATIENT
  Sex: Male

DRUGS (2)
  1. SCAPHO [Suspect]
     Active Substance: SECUKINUMAB
     Indication: ANKYLOSING SPONDYLITIS
     Dosage: 150 MG, QMO
     Route: 058
  2. SCAPHO [Suspect]
     Active Substance: SECUKINUMAB
     Dosage: UNK
     Route: 065
     Dates: start: 20200630

REACTIONS (7)
  - SARS-CoV-2 test positive [Unknown]
  - Asthenia [Unknown]
  - Pyrexia [Unknown]
  - Hyperthyroidism [Unknown]
  - Cough [Unknown]
  - Dyspnoea [Unknown]
  - Hypertension [Unknown]
